FAERS Safety Report 23026944 (Version 1)
Quarter: 2023Q4

REPORT INFORMATION
  Report Type: Spontaneous
  Country: KW (occurrence: KW)
  Receive Date: 20231004
  Receipt Date: 20231004
  Transmission Date: 20240109
  Serious: Yes (Other)
  Sender: FDA-Public Use
  Company Number: KW-STRIDES ARCOLAB LIMITED-2023SP015029

PATIENT
  Age: 14 Year
  Sex: Male

DRUGS (3)
  1. OLANZAPINE [Suspect]
     Active Substance: OLANZAPINE
     Indication: Schizophrenia
     Dosage: UNK
     Route: 065
  2. OLANZAPINE [Suspect]
     Active Substance: OLANZAPINE
     Dosage: UNK (TITRATED UP TO 20 MG/DAY)
     Route: 065
  3. TOPIRAMATE [Suspect]
     Active Substance: TOPIRAMATE
     Indication: Schizophrenia
     Dosage: UNK
     Route: 065

REACTIONS (3)
  - Idiopathic intracranial hypertension [Recovered/Resolved]
  - Weight increased [Recovered/Resolved]
  - Off label use [Unknown]
